FAERS Safety Report 24446751 (Version 2)
Quarter: 2024Q4

REPORT INFORMATION
  Report Type: Spontaneous
  Country: US (occurrence: US)
  Receive Date: 20241016
  Receipt Date: 20241018
  Transmission Date: 20250114
  Serious: Yes (Other)
  Sender: PFIZER
  Company Number: US-PFIZER INC-PV202400133525

PATIENT
  Age: 80 Year
  Sex: Male
  Weight: 95.25 kg

DRUGS (1)
  1. VANCOMYCIN HYDROCHLORIDE [Suspect]
     Active Substance: VANCOMYCIN HYDROCHLORIDE
     Indication: Infection prophylaxis
     Dosage: UNK (GIVEN BY IV INFUSION SLOWLY PRIOR TO SURGERY)
     Route: 042
     Dates: start: 20240716, end: 20240716

REACTIONS (13)
  - Vancomycin infusion reaction [Recovering/Resolving]
  - Dyspnoea [Not Recovered/Not Resolved]
  - Vision blurred [Not Recovered/Not Resolved]
  - Diplopia [Not Recovered/Not Resolved]
  - Urticaria [Not Recovered/Not Resolved]
  - Pruritus [Not Recovered/Not Resolved]
  - Rash [Recovering/Resolving]
  - Dizziness [Unknown]
  - Balance disorder [Unknown]
  - Erythema [Unknown]
  - Burning sensation [Unknown]
  - Skin haemorrhage [Unknown]
  - Insomnia [Not Recovered/Not Resolved]

NARRATIVE: CASE EVENT DATE: 20240716
